FAERS Safety Report 9679124 (Version 1)
Quarter: 2013Q4

REPORT INFORMATION
  Report Type: Spontaneous
  Country: US (occurrence: US)
  Receive Date: 20131108
  Receipt Date: 20131108
  Transmission Date: 20140711
  Serious: Yes (Other)
  Sender: FDA-Public Use
  Company Number: CHPA2013US016424

PATIENT
  Sex: Female

DRUGS (6)
  1. EXCEDRIN EXTRA STRENGTH [Suspect]
     Indication: MIGRAINE
     Dosage: 1 DF, QHS
     Route: 048
  2. EXCEDRIN EXTRA STRENGTH [Suspect]
     Indication: OFF LABEL USE
  3. EXCEDRIN EXTRA STRENGTH [Suspect]
     Indication: BACK PAIN
  4. TRIAMINIC COLD + ALLERGY ORANGE [Suspect]
     Indication: HYPERSENSITIVITY
     Dosage: UNK, UNK
     Route: 048
  5. TRIAMINIC COLD + ALLERGY ORANGE [Suspect]
     Indication: SINUSITIS
  6. TRIAMINIC COLD + ALLERGY ORANGE [Suspect]
     Indication: OFF LABEL USE

REACTIONS (3)
  - Sinusitis [Recovered/Resolved]
  - Underdose [Unknown]
  - Therapeutic response unexpected [Unknown]
